FAERS Safety Report 4705855-9 (Version None)
Quarter: 2005Q2

REPORT INFORMATION
  Report Type: 
  Country: None (occurrence: None)
  Receive Date: 20050629
  Receipt Date: 20050301
  Transmission Date: 20051028
  Serious: Yes (Hospitalization)
  Sender: FDA-Public Use
  Company Number: 05P-163-0292694-00

PATIENT
  Age: 60 Year
  Sex: Male

DRUGS (5)
  1. HUMIRA [Suspect]
     Indication: SPINAL OSTEOARTHRITIS
     Dosage: 40 MG, 1 IN 2 WK, SUBCUTANEOUS
     Route: 058
     Dates: start: 20040801, end: 20041101
  2. INDOMETHACIN [Concomitant]
  3. FLOMAX [Concomitant]
  4. DOCUSATE SODIUM [Concomitant]
  5. ZOLPIDEM TARTRATE [Concomitant]

REACTIONS (4)
  - BETA HAEMOLYTIC STREPTOCOCCAL INFECTION [None]
  - ORCHITIS [None]
  - PYREXIA [None]
  - SCROTAL ABSCESS [None]
